FAERS Safety Report 20535318 (Version 1)
Quarter: 2022Q1

REPORT INFORMATION
  Report Type: Spontaneous
  Country: US (occurrence: None)
  Receive Date: 20220302
  Receipt Date: 20220302
  Transmission Date: 20220423
  Serious: No
  Sender: FDA-Public Use
  Company Number: US-ROCHE-2900105

PATIENT
  Sex: Male
  Weight: 36.320 kg

DRUGS (2)
  1. NUTROPIN [Suspect]
     Active Substance: SOMATROPIN
     Indication: Growth hormone deficiency
     Dosage: ONGOING-YES, NUTROPIN 10MG PEN
     Route: 058
  2. NUTROPIN [Suspect]
     Active Substance: SOMATROPIN

REACTIONS (3)
  - Device defective [Unknown]
  - Drug delivery system malfunction [Unknown]
  - No adverse event [Unknown]
